FAERS Safety Report 25480217 (Version 1)
Quarter: 2025Q2

REPORT INFORMATION
  Report Type: Report from Study
  Country: BE (occurrence: BE)
  Receive Date: 20250625
  Receipt Date: 20250625
  Transmission Date: 20250716
  Serious: Yes (Hospitalization)
  Sender: ALEXION PHARMACEUTICALS
  Company Number: BE-ASTRAZENECA-202506EEA021470BE

PATIENT
  Age: 63 Year

DRUGS (3)
  1. SOLIRIS [Suspect]
     Active Substance: ECULIZUMAB
     Indication: Myasthenia gravis
     Dosage: 1200 MILLIGRAM, Q2W
  2. BEMPEDOIC ACID [Concomitant]
     Active Substance: BEMPEDOIC ACID
     Dosage: 180 MILLIGRAM (1X)
     Route: 065
  3. METOPROLOL [Concomitant]
     Active Substance: METOPROLOL
     Dosage: 100 MILLIGRAM (1X)
     Route: 065

REACTIONS (6)
  - Myocardial infarction [Recovered/Resolved]
  - Speech disorder [Unknown]
  - Gait disturbance [Unknown]
  - Dizziness [Unknown]
  - Fatigue [Unknown]
  - Dyspnoea [Unknown]
